FAERS Safety Report 18630546 (Version 2)
Quarter: 2021Q1

REPORT INFORMATION
  Report Type: Spontaneous
  Country: US (occurrence: US)
  Receive Date: 20201217
  Receipt Date: 20210108
  Transmission Date: 20210419
  Serious: Yes (Other)
  Sender: FDA-Public Use
  Company Number: US-SUNOVION-2020SUN003726

PATIENT
  Age: 17 Year
  Sex: Female
  Weight: 56.82 kg

DRUGS (2)
  1. APTIOM [Suspect]
     Active Substance: ESLICARBAZEPINE ACETATE
     Indication: EPILEPSY
     Dosage: 800 MG
     Route: 048
  2. APTIOM [Suspect]
     Active Substance: ESLICARBAZEPINE ACETATE
     Indication: MICROCEPHALY
     Dosage: 1200 MG, HS
     Route: 048
     Dates: start: 202007

REACTIONS (5)
  - Treatment noncompliance [Unknown]
  - Extra dose administered [Unknown]
  - Generalised tonic-clonic seizure [Unknown]
  - Accidental overdose [Unknown]
  - Product dose omission issue [Unknown]

NARRATIVE: CASE EVENT DATE: 202012
